FAERS Safety Report 10076621 (Version 1)
Quarter: 2014Q2

REPORT INFORMATION
  Report Type: Spontaneous
  Country: US (occurrence: US)
  Receive Date: 20140414
  Receipt Date: 20140414
  Transmission Date: 20141212
  Serious: Yes (Other)
  Sender: FDA-Public Use
  Company Number: US-TEVA-472810USA

PATIENT
  Age: 62 Year
  Sex: Female
  Weight: 115.32 kg

DRUGS (10)
  1. COPAXONE [Suspect]
     Indication: PRIMARY PROGRESSIVE MULTIPLE SCLEROSIS
     Dates: start: 20140224
  2. POTASSIUM [Concomitant]
     Indication: BLOOD POTASSIUM DECREASED
  3. GABAPENTIN [Concomitant]
     Indication: MULTIPLE SCLEROSIS
  4. BACLOFEN [Concomitant]
     Indication: MULTIPLE SCLEROSIS
  5. ASPIRIN [Concomitant]
     Indication: ISCHAEMIC HEART DISEASE PROPHYLAXIS
  6. FLOMAX [Concomitant]
     Indication: BLADDER DISORDER
  7. UNKNOWN MEDICATION [Concomitant]
     Indication: BLOOD CHOLESTEROL ABNORMAL
  8. LANTUS [Concomitant]
     Indication: DIABETES MELLITUS
     Dosage: 45 MILLIGRAM DAILY;
  9. HUMALOG [Concomitant]
     Indication: DIABETES MELLITUS
  10. CYMBALTA [Concomitant]

REACTIONS (4)
  - Primary progressive multiple sclerosis [Unknown]
  - Alopecia [Not Recovered/Not Resolved]
  - Injection site pruritus [Not Recovered/Not Resolved]
  - Off label use [Unknown]
